FAERS Safety Report 5480347-0 (Version None)
Quarter: 2007Q4

REPORT INFORMATION
  Report Type: 
  Country: None (occurrence: None)
  Receive Date: 20071009
  Receipt Date: 20070928
  Transmission Date: 20080405
  Serious: Yes (Disabling)
  Sender: FDA-Public Use
  Company Number: FR-ROCHE-466301

PATIENT
  Age: 46 Year
  Sex: Male
  Weight: 60 kg

DRUGS (10)
  1. INVIRASE [Suspect]
     Indication: HIV INFECTION
     Route: 048
     Dates: start: 19981230, end: 20041025
  2. TRIZIVIR [Suspect]
     Indication: HIV INFECTION
     Route: 048
     Dates: start: 20050921
  3. KALETRA [Suspect]
     Indication: HIV INFECTION
     Route: 048
     Dates: start: 20050131
  4. COMBIVIR [Suspect]
     Indication: HIV INFECTION
     Route: 048
     Dates: start: 20050131, end: 20050921
  5. ZERIT [Suspect]
     Indication: HIV INFECTION
     Route: 048
     Dates: start: 19981230, end: 20041025
  6. NORVIR [Suspect]
     Indication: HIV INFECTION
     Route: 048
     Dates: start: 20060111
  7. NORVIR [Suspect]
     Route: 048
     Dates: start: 19981230, end: 20041025
  8. ZELITREX [Concomitant]
  9. ESCITALOPRAM [Concomitant]
  10. SERESTA [Concomitant]

REACTIONS (1)
  - CORONARY ARTERY DISEASE [None]
